FAERS Safety Report 15136881 (Version 2)
Quarter: 2018Q3

REPORT INFORMATION
  Report Type: Report from Study
  Country: DE (occurrence: DE)
  Receive Date: 20180712
  Receipt Date: 20180921
  Transmission Date: 20181010
  Serious: Yes (Hospitalization)
  Sender: FDA-Public Use
  Company Number: PHHY2018DE016842

PATIENT
  Age: 49 Year
  Sex: Male
  Weight: 107 kg

DRUGS (1)
  1. ILARIS [Suspect]
     Active Substance: CANAKINUMAB
     Indication: MUCKLE-WELLS SYNDROME
     Dosage: 150 MG, (EVERY 8 WEEKS)
     Route: 058
     Dates: start: 20100914, end: 201508

REACTIONS (3)
  - Inflammation [Recovered/Resolved]
  - Skin ulcer [Recovering/Resolving]
  - Abscess limb [Recovering/Resolving]

NARRATIVE: CASE EVENT DATE: 20141111
